FAERS Safety Report 15543256 (Version 1)
Quarter: 2018Q4

REPORT INFORMATION
  Report Type: Spontaneous
  Country: EC (occurrence: EC)
  Receive Date: 20181023
  Receipt Date: 20181023
  Transmission Date: 20190205
  Serious: Yes (Other)
  Sender: FDA-Public Use
  Company Number: EC-PFIZER INC-2018425942

PATIENT
  Age: 15 Year
  Sex: Male

DRUGS (2)
  1. CELEBREX [Suspect]
     Active Substance: CELECOXIB
     Indication: LIGAMENT SPRAIN
     Dosage: 200 MG, 2X/DAY
  2. CELEBREX [Suspect]
     Active Substance: CELECOXIB
     Indication: FRACTURE

REACTIONS (5)
  - Pharyngeal haemorrhage [Unknown]
  - Abdominal pain upper [Unknown]
  - Vomiting [Unknown]
  - Chest pain [Unknown]
  - Oropharyngeal pain [Unknown]
